FAERS Safety Report 6085349-1 (Version None)
Quarter: 2009Q1

REPORT INFORMATION
  Report Type: 
  Country: None (occurrence: None)
  Receive Date: 20090220
  Receipt Date: 20090209
  Transmission Date: 20090719
  Serious: Yes (Hospitalization, Other)
  Sender: FDA-Public Use
  Company Number: FR-PFIZER INC-2009169844

PATIENT

DRUGS (1)
  1. ATENOLOL [Suspect]
     Indication: MARFAN'S SYNDROME
     Dosage: 100 MG, 1X/DAY
     Route: 064
     Dates: end: 20090119

REACTIONS (2)
  - FOETAL DISTRESS SYNDROME [None]
  - RESPIRATORY DISTRESS [None]
